FAERS Safety Report 14032057 (Version 1)
Quarter: 2017Q4

REPORT INFORMATION
  Report Type: Report from Study
  Country: GR (occurrence: GR)
  Receive Date: 20171002
  Receipt Date: 20171002
  Transmission Date: 20180321
  Serious: Yes (Hospitalization)
  Sender: FDA-Public Use
  Company Number: GR-TAKEDA-2017TUS020209

PATIENT
  Age: 63 Year
  Sex: Male

DRUGS (2)
  1. VEDOLIZUMAB [Suspect]
     Active Substance: VEDOLIZUMAB
     Indication: COLITIS ULCERATIVE
     Dosage: UNK
     Route: 042
     Dates: start: 20170223, end: 20170727
  2. PREZOLON [Concomitant]
     Active Substance: PREDNISOLONE
     Dosage: UNK

REACTIONS (1)
  - Haematocrit decreased [Unknown]
